FAERS Safety Report 6368912-X (Version None)
Quarter: 2009Q3

REPORT INFORMATION
  Report Type: 
  Country: None (occurrence: None)
  Receive Date: 20090922
  Receipt Date: 20090911
  Transmission Date: 20100115
  Serious: Yes (Other)
  Sender: FDA-Public Use
  Company Number: JP-ROCHE-645958

PATIENT
  Age: 40 Year
  Sex: Female

DRUGS (4)
  1. CELLCEPT [Suspect]
     Route: 048
  2. TACROLIMUS [Suspect]
     Route: 065
  3. PREDNISONE [Suspect]
     Route: 065
  4. SIMULECT [Suspect]
     Route: 065

REACTIONS (3)
  - GRAFT DYSFUNCTION [None]
  - GRAFT THROMBOSIS [None]
  - VASCULAR GRAFT COMPLICATION [None]
